FAERS Safety Report 16567293 (Version 1)
Quarter: 2019Q3

REPORT INFORMATION
  Report Type: Spontaneous
  Country: US (occurrence: US)
  Receive Date: 20190712
  Receipt Date: 20190712
  Transmission Date: 20191004
  Serious: No
  Sender: FDA-Public Use
  Company Number: US-SUNOVION-2019SUN002889

PATIENT

DRUGS (2)
  1. XOPENEX [Suspect]
     Active Substance: LEVALBUTEROL HYDROCHLORIDE
     Route: 055
  2. XANAX [Concomitant]
     Active Substance: ALPRAZOLAM
     Dosage: HALF A XANAX BEFORE XOPENEX USE

REACTIONS (2)
  - Asthma [Unknown]
  - Therapeutic product effect decreased [Unknown]
